FAERS Safety Report 13156022 (Version 1)
Quarter: 2017Q1

REPORT INFORMATION
  Report Type: Spontaneous
  Country: US (occurrence: US)
  Receive Date: 20170126
  Receipt Date: 20170126
  Transmission Date: 20170428
  Serious: No
  Sender: FDA-Public Use
  Company Number: US-ROCHE-794857

PATIENT
  Age: 75 Year
  Sex: Female

DRUGS (2)
  1. VALIUM [Suspect]
     Active Substance: DIAZEPAM
     Indication: ANXIETY
     Dosage: FREQUENCY: EVERY MORNING, EVERY NIGHT. DATE OF USE: MANY YEARS AGO.
     Route: 048
  2. VALIUM [Suspect]
     Active Substance: DIAZEPAM
     Dosage: FREQUENCY: EVERY MORNING, EVERY NIGHT. DATE OF USE: RECENTLY.
     Route: 048

REACTIONS (5)
  - Foot fracture [Unknown]
  - Malaise [Unknown]
  - Stress [Unknown]
  - Device failure [Unknown]
  - Drug effect decreased [Unknown]
